FAERS Safety Report 9348739 (Version 1)
Quarter: 2013Q2

REPORT INFORMATION
  Report Type: Spontaneous
  Country: US (occurrence: US)
  Receive Date: 20130614
  Receipt Date: 20130614
  Transmission Date: 20140414
  Serious: No
  Sender: FDA-Public Use
  Company Number: US-GLAXOSMITHKLINE-A1017889A

PATIENT
  Age: 45 Year
  Sex: Female

DRUGS (2)
  1. TREXIMET [Suspect]
     Indication: MIGRAINE
     Route: 048
     Dates: start: 2005
  2. NO CONCURRENT MEDICATION [Concomitant]

REACTIONS (2)
  - Vomiting [Recovered/Resolved]
  - Sensory disturbance [Recovered/Resolved]
